FAERS Safety Report 25331144 (Version 1)
Quarter: 2025Q2

REPORT INFORMATION
  Report Type: Spontaneous
  Country: US (occurrence: None)
  Receive Date: 20250517
  Receipt Date: 20250517
  Transmission Date: 20250717
  Serious: Yes (Hospitalization, Other)
  Sender: FDA-CTU
  Company Number: None

PATIENT
  Age: 59 Year
  Sex: Female
  Weight: 74.25 kg

DRUGS (1)
  1. CARVYKTI [Suspect]
     Active Substance: CILTACABTAGENE AUTOLEUCEL
     Indication: Plasma cell myeloma refractory
     Route: 041
     Dates: start: 20250428

REACTIONS (5)
  - Gait disturbance [None]
  - Cognitive disorder [None]
  - Speech disorder [None]
  - Tremor [None]
  - Parkinsonism [None]

NARRATIVE: CASE EVENT DATE: 20250515
